FAERS Safety Report 9267594 (Version 1)
Quarter: 2013Q2

REPORT INFORMATION
  Report Type: Spontaneous
  Country: US (occurrence: US)
  Receive Date: 20130502
  Receipt Date: 20130502
  Transmission Date: 20140414
  Serious: No
  Sender: FDA-Public Use
  Company Number: US-009507513-1305USA000543

PATIENT
  Age: 17 Year
  Sex: Male
  Weight: 68.27 kg

DRUGS (1)
  1. INVANZ [Suspect]
     Dosage: 1 G, UNK
     Route: 042
     Dates: start: 20130110

REACTIONS (3)
  - Inappropriate schedule of drug administration [Unknown]
  - Overdose [Unknown]
  - No adverse event [Unknown]
